FAERS Safety Report 7680617-1 (Version None)
Quarter: 2011Q3

REPORT INFORMATION
  Report Type: 
  Country: None (occurrence: None)
  Receive Date: 20110812
  Receipt Date: 20110803
  Transmission Date: 20111222
  Serious: Yes (Other)
  Sender: FDA-Public Use
  Company Number: US-ROCHE-794807

PATIENT
  Sex: Male

DRUGS (2)
  1. ACCUTANE [Suspect]
     Dosage: BETWEEN FEBRUARY 2002 AND OCT 2008
     Route: 065
  2. ACCUTANE [Suspect]
     Dosage: BETWEEN APRIL 1997 AND FEBRUARY 2002
     Route: 065

REACTIONS (2)
  - IRRITABLE BOWEL SYNDROME [None]
  - HIATUS HERNIA [None]
